FAERS Safety Report 7550437-7 (Version None)
Quarter: 2011Q2

REPORT INFORMATION
  Report Type: 
  Country: None (occurrence: None)
  Receive Date: 20110615
  Receipt Date: 20110601
  Transmission Date: 20111010
  Serious: Yes (Other)
  Sender: FDA-Public Use
  Company Number: BR-GENENTECH-298473

PATIENT
  Sex: Female
  Weight: 59 kg

DRUGS (10)
  1. RITUXIMAB [Suspect]
     Indication: RHEUMATOID ARTHRITIS
     Dosage: UNK
     Route: 042
     Dates: start: 20110401, end: 20110401
  2. RITUXIMAB [Suspect]
     Dosage: 500 MG/ML, Q15D
     Route: 042
     Dates: start: 20090914, end: 20090922
  3. RITUXIMAB [Suspect]
     Dosage: UNK
     Route: 042
     Dates: start: 20080301, end: 20080301
  4. KETOPROFEN [Concomitant]
     Indication: PAIN
     Dosage: 100 MG, UNK
  5. PREDNISONE [Concomitant]
     Indication: PRODUCT USED FOR UNKNOWN INDICATION
  6. SULFADIAZINE [Concomitant]
     Indication: PRODUCT USED FOR UNKNOWN INDICATION
     Dosage: 20 MG, UNK
  7. UNSPECIFIED MEDICATION [Concomitant]
     Indication: PRODUCT USED FOR UNKNOWN INDICATION
  8. CALCORT [Concomitant]
     Indication: PRODUCT USED FOR UNKNOWN INDICATION
     Dosage: 20 MG, UNK
  9. TOCILIZUMAB [Suspect]
     Indication: RHEUMATOID ARTHRITIS
     Dosage: 8 MG/KG, Q28D
     Route: 042
     Dates: start: 20100601
  10. DORFLEX [Concomitant]
     Indication: PRODUCT USED FOR UNKNOWN INDICATION
     Dosage: 700 MG, UNK

REACTIONS (7)
  - MUSCLE ATROPHY [None]
  - ARTHRALGIA [None]
  - PAIN IN EXTREMITY [None]
  - ILL-DEFINED DISORDER [None]
  - DRY SKIN [None]
  - PAIN [None]
  - DRUG INEFFECTIVE [None]
